FAERS Safety Report 7064331-1 (Version None)
Quarter: 2010Q4

REPORT INFORMATION
  Report Type: 
  Country: None (occurrence: None)
  Receive Date: 20101027
  Receipt Date: 20101015
  Transmission Date: 20110411
  Serious: Yes (Congenital Anomaly, Other)
  Sender: FDA-Public Use
  Company Number: NL-TYCO HEALTHCARE/MALLINCKRODT-T201002146

PATIENT
  Age: 6 Week
  Sex: Male

DRUGS (5)
  1. FLUOXETINE [Suspect]
     Dosage: UNK
  2. OMEPRAZOLE [Suspect]
     Dosage: UNK
  3. MICONAZOLNITRAAT/HYDROCORTISON PCH [Suspect]
     Dosage: UNK
  4. CLOTRIMAZOL [Suspect]
     Dosage: UNK
  5. TOBACCO [Suspect]
     Dosage: UNK

REACTIONS (3)
  - DRUG EXPOSURE DURING PREGNANCY [None]
  - FOETAL TOBACCO EXPOSURE [None]
  - PYLORIC STENOSIS [None]
